FAERS Safety Report 5781613-1 (Version None)
Quarter: 2008Q2

REPORT INFORMATION
  Report Type: 
  Country: None (occurrence: None)
  Receive Date: 20080623
  Receipt Date: 20070802
  Transmission Date: 20081010
  Serious: No
  Sender: FDA-Public Use
  Company Number: US-ASTRAZENECA-2007UW18658

PATIENT
  Age: 56 Year
  Sex: Male
  Weight: 86.2 kg

DRUGS (3)
  1. RHINOCORT [Suspect]
     Indication: NASAL DISORDER
     Route: 045
     Dates: start: 20070701
  2. RHINOCORT [Suspect]
     Indication: SLEEP DISORDER
     Route: 045
     Dates: start: 20070701
  3. TERAZOSIN HCL [Concomitant]

REACTIONS (1)
  - SOMNOLENCE [None]
